FAERS Safety Report 9821360 (Version 2)
Quarter: 2014Q1

REPORT INFORMATION
  Report Type: Spontaneous
  Country: US (occurrence: US)
  Receive Date: 20140116
  Receipt Date: 20140116
  Transmission Date: 20141002
  Serious: Yes (Hospitalization)
  Sender: FDA-Public Use
  Company Number: US-GILEAD-2011-0035770

PATIENT
  Age: 65 Year
  Sex: Female

DRUGS (14)
  1. LETAIRIS [Suspect]
     Indication: PULMONARY HYPERTENSION
     Route: 048
     Dates: start: 20110113, end: 20110120
  2. REVATIO [Concomitant]
  3. LABETALOL [Concomitant]
  4. DIOVAN HCT [Concomitant]
  5. ASPIRIN [Concomitant]
  6. ADVAIR [Concomitant]
  7. BUMEX [Concomitant]
  8. NOVOLOG [Concomitant]
  9. DARVOCET [Concomitant]
  10. GABAPENTIN [Concomitant]
  11. GLUCOSAMINE [Concomitant]
  12. NORTRIPTYLINE [Concomitant]
  13. L-THYROXINE [Concomitant]
  14. PREDNISONE [Concomitant]

REACTIONS (6)
  - Anaemia [Unknown]
  - Liver function test abnormal [Unknown]
  - Blood urea increased [Unknown]
  - Blood creatinine increased [Unknown]
  - Fluid retention [Unknown]
  - Weight increased [Recovered/Resolved]
